FAERS Safety Report 23547307 (Version 1)
Quarter: 2024Q1

REPORT INFORMATION
  Report Type: Spontaneous
  Country: ES (occurrence: ES)
  Receive Date: 20240221
  Receipt Date: 20240221
  Transmission Date: 20240409
  Serious: Yes (Other)
  Sender: FDA-Public Use
  Company Number: ES-CELGENE-ESP-2015114124

PATIENT
  Age: 76 Year
  Sex: Female

DRUGS (1)
  1. AZACITIDINE [Suspect]
     Active Substance: AZACITIDINE
     Indication: Myelodysplastic syndrome
     Dosage: 50 MILLIGRAM/SQ. METER
     Route: 058
     Dates: start: 20130809

REACTIONS (2)
  - Pancytopenia [Unknown]
  - Toxicity to various agents [Unknown]
